FAERS Safety Report 10171026 (Version 2)
Quarter: 2014Q4

REPORT INFORMATION
  Report Type: Spontaneous
  Country: US (occurrence: None)
  Receive Date: 20140425
  Receipt Date: 20141024
  Transmission Date: 20150528
  Serious: Yes (Other)
  Sender: FDA-Public Use
  Company Number: 2014SGN00088

PATIENT
  Age: 28 Year
  Sex: Male

DRUGS (4)
  1. COMPAZINE (PROCHLORPERAZINE MALEATE) [Concomitant]
  2. TRAMADOL (TRAMADOL HYDROCHLORIDE) [Concomitant]
     Active Substance: TRAMADOL HYDROCHLORIDE
  3. ZOFRAN (ONDANSETRON HYDROCHLORIDE) [Concomitant]
  4. ADCETRIS [Suspect]
     Active Substance: BRENTUXIMAB VEDOTIN
     Indication: HODGKIN^S DISEASE
     Dosage: Q21D
     Route: 042
     Dates: start: 20140110, end: 20140131

REACTIONS (1)
  - Anaphylactic reaction [None]

NARRATIVE: CASE EVENT DATE: 20140110
